FAERS Safety Report 7710275-9 (Version None)
Quarter: 2011Q3

REPORT INFORMATION
  Report Type: 
  Country: None (occurrence: None)
  Receive Date: 20110825
  Receipt Date: 20110816
  Transmission Date: 20111222
  Serious: Yes (Hospitalization, Other)
  Sender: FDA-Public Use
  Company Number: DE-BRISTOL-MYERS SQUIBB COMPANY-15796089

PATIENT
  Age: 68 Year
  Sex: Male

DRUGS (2)
  1. ORENCIA [Suspect]
     Indication: RHEUMATOID ARTHRITIS
     Dosage: ALSO TAKEN 500MG
     Dates: start: 20100501, end: 20101101
  2. ADALIMUMAB [Suspect]
     Dosage: AUG2005-MAY2009 NOV2009-MAY2010
     Dates: start: 20050801, end: 20100501

REACTIONS (6)
  - GUILLAIN-BARRE SYNDROME [None]
  - WOUND [None]
  - FURUNCLE [None]
  - LEUKOPENIA [None]
  - RHEUMATOID ARTHRITIS [None]
  - THROMBOCYTOPENIA [None]
